FAERS Safety Report 5098199-X (Version None)
Quarter: 2006Q3

REPORT INFORMATION
  Report Type: 
  Country: None (occurrence: None)
  Receive Date: 20060906
  Receipt Date: 20060530
  Transmission Date: 20061208
  Serious: No
  Sender: FDA-Public Use
  Company Number: US-GLAXOSMITHKLINE-A0607254A

PATIENT
  Age: 54 Year
  Sex: Female

DRUGS (4)
  1. REQUIP [Suspect]
     Indication: RESTLESS LEGS SYNDROME
     Dosage: 3MG AS REQUIRED
     Route: 048
     Dates: start: 20060430
  2. CLARITIN-D [Concomitant]
  3. UNKNOWN MEDICATION [Concomitant]
  4. PROTONIX [Concomitant]

REACTIONS (2)
  - DRUG INEFFECTIVE [None]
  - SOMNOLENCE [None]
